FAERS Safety Report 4363974-3 (Version None)
Quarter: 2004Q2

REPORT INFORMATION
  Report Type: 
  Country: None (occurrence: None)
  Receive Date: 20040519
  Receipt Date: 20040510
  Transmission Date: 20050107
  Serious: Yes (Death)
  Sender: FDA-Public Use
  Company Number: 2004210218JP

PATIENT
  Age: 78 Year
  Sex: Female
  Weight: 37 kg

DRUGS (6)
  1. AZULFIDINE EN-TABS [Suspect]
     Indication: RHEUMATOID ARTHRITIS
     Dosage: 500 MG, BID, ORAL
     Route: 048
     Dates: start: 20040304, end: 20040414
  2. BUFFERIN [Suspect]
     Indication: CEREBRAL INFARCTION
     Dosage: 81 MG, QD, ORAL
     Route: 048
     Dates: start: 20011005, end: 20040414
  3. SHAKUYAKU-KANZO-TO (CHINESE TRADITIONAL DRUG) [Suspect]
     Dosage: 2.5 G, TID, ORAL
     Route: 048
     Dates: start: 20040108, end: 20040414
  4. PREDONINE [Concomitant]
  5. ALFAROL (ALFACALCIDOL) [Concomitant]
  6. UREPEARL [Concomitant]

REACTIONS (4)
  - GRANULOCYTOPENIA [None]
  - PNEUMONIA [None]
  - RESPIRATORY FAILURE [None]
  - SEPTIC SHOCK [None]
